FAERS Safety Report 7057679-8 (Version None)
Quarter: 2010Q4

REPORT INFORMATION
  Report Type: 
  Country: None (occurrence: None)
  Receive Date: 20101022
  Receipt Date: 20101013
  Transmission Date: 20110411
  Serious: Yes (Other)
  Sender: FDA-Public Use
  Company Number: FR-PFIZER INC-2010129685

PATIENT
  Sex: Female
  Weight: 3.54 kg

DRUGS (1)
  1. SALAZOPYRINE [Suspect]
     Indication: RHEUMATOID ARTHRITIS
     Dosage: UNK
     Route: 064

REACTIONS (3)
  - DRUG EXPOSURE DURING PREGNANCY [None]
  - HYPOGLYCAEMIA NEONATAL [None]
  - VENTRICULAR SEPTAL DEFECT [None]
